FAERS Safety Report 19971863 (Version 1)
Quarter: 2021Q4

REPORT INFORMATION
  Report Type: Spontaneous
  Country: CN (occurrence: CN)
  Receive Date: 20211019
  Receipt Date: 20211019
  Transmission Date: 20220304
  Serious: Yes (Other)
  Sender: FDA-Public Use
  Company Number: CN-002147023-NVSC2021CN237460

PATIENT
  Age: 46 Year
  Sex: Female

DRUGS (3)
  1. VOTALIN [Suspect]
     Active Substance: DICLOFENAC SODIUM
     Indication: Arthralgia
     Dosage: 1 DF, QD
     Route: 048
     Dates: start: 20210926, end: 20211010
  2. DIACEREIN [Suspect]
     Active Substance: DIACEREIN
     Indication: Arthralgia
     Dosage: 1 DF, QD
     Route: 060
     Dates: start: 20210926, end: 20211010
  3. CEFACLOR [Suspect]
     Active Substance: CEFACLOR
     Indication: Pyrexia
     Dosage: 0.25 G, TID
     Route: 048
     Dates: start: 20211006, end: 20211007

REACTIONS (1)
  - Rash [Unknown]

NARRATIVE: CASE EVENT DATE: 20211007
